FAERS Safety Report 17536856 (Version 2)
Quarter: 2020Q1

REPORT INFORMATION
  Report Type: Spontaneous
  Country: HU (occurrence: HU)
  Receive Date: 20200313
  Receipt Date: 20200330
  Transmission Date: 20200409
  Serious: Yes (Other)
  Sender: FDA-Public Use
  Company Number: NVSC2020HU070821

PATIENT
  Age: 13 Year
  Sex: Female

DRUGS (1)
  1. TACROLIMUS. [Suspect]
     Active Substance: TACROLIMUS
     Indication: SCLERODERMA
     Dosage: UNK
     Route: 065

REACTIONS (3)
  - Scleroderma [Unknown]
  - Disease progression [Unknown]
  - Product use in unapproved indication [Unknown]
